FAERS Safety Report 23860261 (Version 1)
Quarter: 2024Q2

REPORT INFORMATION
  Report Type: Spontaneous
  Country: AU (occurrence: AU)
  Receive Date: 20240515
  Receipt Date: 20240515
  Transmission Date: 20240715
  Serious: Yes (Other)
  Sender: FDA-Public Use
  Company Number: AU-BRISTOL-MYERS SQUIBB COMPANY-2024-072634

PATIENT
  Age: 48 Year
  Sex: Female

DRUGS (1)
  1. DASATINIB [Suspect]
     Active Substance: DASATINIB
     Indication: Product used for unknown indication

REACTIONS (8)
  - Transient ischaemic attack [Unknown]
  - Supraventricular tachycardia [Unknown]
  - Pancreatitis [Unknown]
  - Lipase increased [Unknown]
  - Drug intolerance [Unknown]
  - Cerebral vasoconstriction [Unknown]
  - Arrhythmia [Unknown]
  - Acute myocardial infarction [Unknown]
